FAERS Safety Report 8442137-6 (Version None)
Quarter: 2012Q2

REPORT INFORMATION
  Report Type: 
  Country: None (occurrence: None)
  Receive Date: 20120615
  Receipt Date: 20120301
  Transmission Date: 20120825
  Serious: No
  Sender: FDA-Public Use
  Company Number: US-NOVEN-12US004197

PATIENT
  Sex: Male
  Weight: 21.769 kg

DRUGS (2)
  1. DAYTRANA [Suspect]
     Indication: ATTENTION DEFICIT/HYPERACTIVITY DISORDER
     Dosage: 15 MG, QD
     Route: 062
     Dates: start: 20110801
  2. SINGULAIR [Concomitant]
     Indication: ASTHMA
     Dosage: 5 MG, UNK
     Route: 048

REACTIONS (4)
  - SPEECH DISORDER [None]
  - EYE PAIN [None]
  - DECREASED APPETITE [None]
  - WEIGHT DECREASED [None]
